FAERS Safety Report 8114230-9 (Version None)
Quarter: 2012Q1

REPORT INFORMATION
  Report Type: 
  Country: None (occurrence: None)
  Receive Date: 20120205
  Receipt Date: 20120125
  Transmission Date: 20120608
  Serious: Yes (Hospitalization)
  Sender: FDA-Public Use
  Company Number: BE-BRISTOL-MYERS SQUIBB COMPANY-16336877

PATIENT
  Age: 41 Year
  Sex: Male
  Weight: 81 kg

DRUGS (2)
  1. PACLITAXEL [Suspect]
     Indication: GASTRIC CANCER
     Dosage: DAY 1,8,15 OF EVERY 4 WK CYCLAST DOSE ON 31OCT11INTER ON 7NOV11. DOSE CHANGED TO 117MG ON 14NOV11.
     Route: 042
     Dates: start: 20110711
  2. PANTOPRAZOLE [Concomitant]
     Indication: DYSPHAGIA
     Dates: start: 20110905

REACTIONS (1)
  - CHOLECYSTITIS ACUTE [None]
